FAERS Safety Report 7386702-6 (Version None)
Quarter: 2011Q1

REPORT INFORMATION
  Report Type: 
  Country: None (occurrence: None)
  Receive Date: 20110331
  Receipt Date: 20110323
  Transmission Date: 20110831
  Serious: Yes (Hospitalization, Disabling, Other)
  Sender: FDA-Public Use
  Company Number: US-PFIZER INC-HQWYE206609FEB05

PATIENT
  Sex: Female
  Weight: 77 kg

DRUGS (8)
  1. CYCRIN [Suspect]
     Indication: HORMONE REPLACEMENT THERAPY
     Dosage: 2.5 MG AND 10 MG
     Dates: start: 19870101, end: 19980101
  2. DIOVANE [Concomitant]
     Indication: BLOOD PRESSURE
     Dosage: UNK
     Dates: start: 19780101
  3. ESTRADIOL [Suspect]
     Indication: HORMONE REPLACEMENT THERAPY
     Dosage: 0.5 AND 1 MG
     Route: 048
     Dates: start: 19870101, end: 19990101
  4. PROVERA [Suspect]
     Indication: HORMONE REPLACEMENT THERAPY
     Dosage: 10 MG AND 2.5 MG
     Route: 048
     Dates: start: 19970101, end: 19980101
  5. PREMPRO [Suspect]
     Dosage: UNK
     Route: 048
     Dates: start: 20000101, end: 20010101
  6. PREMPRO [Suspect]
     Indication: HORMONE REPLACEMENT THERAPY
     Dosage: 0.625 MG/ 2.5 MG
     Route: 048
     Dates: start: 19970101, end: 19970901
  7. PROMETRIUM [Suspect]
     Indication: HORMONE REPLACEMENT THERAPY
     Dosage: 100 MG, UNK
     Dates: start: 19990729
  8. PREMARIN [Suspect]
     Indication: HORMONE REPLACEMENT THERAPY
     Dosage: 0.625 MG
     Route: 048
     Dates: start: 19980723, end: 19980901

REACTIONS (1)
  - BREAST CANCER FEMALE [None]
